FAERS Safety Report 7441816-7 (Version None)
Quarter: 2011Q2

REPORT INFORMATION
  Report Type: 
  Country: None (occurrence: None)
  Receive Date: 20110428
  Receipt Date: 20110421
  Transmission Date: 20111010
  Serious: Yes (Other)
  Sender: FDA-Public Use
  Company Number: JP-CEPHALON-2011001420

PATIENT
  Age: 70 Year
  Sex: Male

DRUGS (2)
  1. BENDAMUSTINE HCL [Suspect]
     Indication: B-CELL LYMPHOMA
     Route: 041
     Dates: start: 20110310
  2. RITUXIMAB [Concomitant]
     Indication: B-CELL LYMPHOMA
     Dates: start: 20110310

REACTIONS (4)
  - PHLEBITIS [None]
  - NEUTROPHIL COUNT DECREASED [None]
  - BLOOD BILIRUBIN INCREASED [None]
  - WHITE BLOOD CELL COUNT DECREASED [None]
